FAERS Safety Report 4986065-7 (Version None)
Quarter: 2006Q2

REPORT INFORMATION
  Report Type: 
  Country: None (occurrence: None)
  Receive Date: 20060428
  Receipt Date: 20060328
  Transmission Date: 20061013
  Serious: Yes (Hospitalization, Other)
  Sender: FDA-Public Use
  Company Number: PHBS2006JP04753

PATIENT
  Age: 38 Year
  Sex: Male

DRUGS (5)
  1. DIOVAN [Suspect]
     Dosage: 160 MG/DAY
     Route: 048
     Dates: start: 20050301
  2. AMLODIN [Concomitant]
     Route: 048
  3. COVERSYL [Concomitant]
     Route: 048
  4. LASIX [Concomitant]
     Route: 048
  5. NORMONAL [Concomitant]
     Route: 048

REACTIONS (5)
  - BLOOD CREATINE PHOSPHOKINASE INCREASED [None]
  - BLOOD CREATININE INCREASED [None]
  - HYPERTENSION [None]
  - MUSCLE DISORDER [None]
  - SWELLING [None]
